FAERS Safety Report 25278072 (Version 1)
Quarter: 2025Q2

REPORT INFORMATION
  Report Type: Spontaneous
  Country: CA (occurrence: CA)
  Receive Date: 20250507
  Receipt Date: 20250507
  Transmission Date: 20250717
  Serious: Yes (Other)
  Sender: ASTELLAS
  Company Number: CA-ASTELLAS-2024-AER-027439

PATIENT
  Age: 14 Year
  Sex: Male

DRUGS (1)
  1. TACROLIMUS [Suspect]
     Active Substance: TACROLIMUS
     Indication: Cholangitis sclerosing
     Route: 065

REACTIONS (4)
  - Growth failure [Unknown]
  - Acne [Unknown]
  - Drug ineffective for unapproved indication [Unknown]
  - Off label use [Unknown]
